FAERS Safety Report 8065331-5 (Version None)
Quarter: 2012Q1

REPORT INFORMATION
  Report Type: 
  Country: None (occurrence: None)
  Receive Date: 20120124
  Receipt Date: 20120116
  Transmission Date: 20120608
  Serious: Yes (Hospitalization)
  Sender: FDA-Public Use
  Company Number: JP-JNJFOC-20111009567

PATIENT
  Age: 20 Year
  Sex: Male

DRUGS (1)
  1. LEVOFLOXACIN [Suspect]
     Indication: NASOPHARYNGITIS
     Dosage: 500MG AT NOON AND 500 MG IN EVENING
     Route: 048

REACTIONS (3)
  - INCORRECT DOSE ADMINISTERED [None]
  - TINNITUS [None]
  - FEELING DRUNK [None]
